FAERS Safety Report 5884232-1 (Version None)
Quarter: 2008Q3

REPORT INFORMATION
  Report Type: 
  Country: None (occurrence: None)
  Receive Date: 20080911
  Receipt Date: 20080902
  Transmission Date: 20090109
  Serious: Yes (Other)
  Sender: FDA-Public Use
  Company Number: SPV1-2008-01883

PATIENT
  Age: 9 Year
  Sex: Female
  Weight: 30.8 kg

DRUGS (2)
  1. VYVANSE [Suspect]
     Indication: ATTENTION DEFICIT/HYPERACTIVITY DISORDER
     Dosage: 30 MG, 1X/DAY; QD; ORAL
     Route: 048
     Dates: start: 20080827, end: 20080827
  2. ASMANEX TWISTHALER [Concomitant]

REACTIONS (5)
  - AGGRESSION [None]
  - FATIGUE [None]
  - MOOD SWINGS [None]
  - SUICIDAL BEHAVIOUR [None]
  - SUICIDAL IDEATION [None]
